FAERS Safety Report 22061806 (Version 1)
Quarter: 2023Q1

REPORT INFORMATION
  Report Type: Spontaneous
  Country: US (occurrence: US)
  Receive Date: 20230304
  Receipt Date: 20230304
  Transmission Date: 20230417
  Serious: Yes (Other)
  Sender: FDA-Public Use
  Company Number: US-002147023-NVSC2023US045401

PATIENT
  Sex: Male

DRUGS (1)
  1. NITROFURANTOIN [Suspect]
     Active Substance: NITROFURANTOIN
     Indication: Product used for unknown indication
     Dosage: 1 DOSAGE FORM, QD
     Route: 065

REACTIONS (6)
  - Blood pressure increased [Unknown]
  - Urinary tract infection [Unknown]
  - Paraesthesia [Unknown]
  - Limb discomfort [Unknown]
  - Headache [Unknown]
  - Drug ineffective [Unknown]
